FAERS Safety Report 9325557 (Version 2)
Quarter: 2013Q2

REPORT INFORMATION
  Report Type: Spontaneous
  Country: IT (occurrence: IT)
  Receive Date: 20130604
  Receipt Date: 20130607
  Transmission Date: 20140414
  Serious: Yes (Other)
  Sender: FDA-Public Use
  Company Number: IT-VERTEX PHARMACEUTICALS INC-2013-006683

PATIENT
  Age: 65 Year
  Sex: Male
  Weight: 85 kg

DRUGS (4)
  1. INCIVO [Suspect]
     Indication: CHRONIC HEPATITIS C
     Dosage: 375 MG, UNK
     Route: 048
     Dates: start: 20130318
  2. TAVOR [Concomitant]
     Indication: PRODUCT USED FOR UNKNOWN INDICATION
     Dosage: 2.5 MG, UNK
     Route: 048
     Dates: start: 20130430, end: 20130523
  3. PEGASYS [Concomitant]
     Indication: CHRONIC HEPATITIS C
     Dosage: 180 MG, UNK
     Route: 058
     Dates: start: 20130318, end: 20130523
  4. COPEGUS [Concomitant]
     Indication: CHRONIC HEPATITIS C
     Dosage: 800 MG, UNK
     Route: 048

REACTIONS (1)
  - Rash [Recovered/Resolved]
